FAERS Safety Report 16065287 (Version 1)
Quarter: 2019Q1

REPORT INFORMATION
  Report Type: Spontaneous
  Country: IR (occurrence: IR)
  Receive Date: 20190313
  Receipt Date: 20190313
  Transmission Date: 20190418
  Serious: Yes (Hospitalization)
  Sender: FDA-Public Use
  Company Number: IR-STRIDES ARCOLAB LIMITED-2019SP002150

PATIENT
  Age: 38 Year
  Sex: Female

DRUGS (2)
  1. CLONAZEPAM. [Suspect]
     Active Substance: CLONAZEPAM
     Indication: PRODUCT USED FOR UNKNOWN INDICATION
     Dosage: 10 TABLETS OF 1MG
     Route: 048
  2. HYDRALAZINE HCL [Suspect]
     Active Substance: HYDRALAZINE HYDROCHLORIDE
     Indication: PRODUCT USED FOR UNKNOWN INDICATION
     Dosage: 750 MG, UNKNOWN (30 TABLETS OF 25MG)
     Route: 048

REACTIONS (10)
  - Suicide attempt [Unknown]
  - Haemodynamic instability [Recovered/Resolved]
  - Lethargy [Recovered/Resolved]
  - Chest pain [Recovered/Resolved]
  - Acute myocardial infarction [Recovered/Resolved]
  - Hypotension [Recovered/Resolved]
  - Electrocardiogram abnormal [Recovered/Resolved]
  - Sinus tachycardia [Recovered/Resolved]
  - Mitral valve incompetence [Recovered/Resolved]
  - Overdose [Recovered/Resolved]
